FAERS Safety Report 17565319 (Version 1)
Quarter: 2020Q1

REPORT INFORMATION
  Report Type: Spontaneous
  Country: US (occurrence: US)
  Receive Date: 20200320
  Receipt Date: 20200320
  Transmission Date: 20200409
  Serious: No
  Sender: FDA-Public Use
  Company Number: None

PATIENT
  Age: 84 Year
  Sex: Male
  Weight: 90 kg

DRUGS (1)
  1. INVISIGLOVE HAND + SKIN PURIFIER [Suspect]
     Active Substance: BENZALKONIUM CHLORIDE
     Indication: ANTIBIOTIC PROPHYLAXIS
     Dosage: ?          QUANTITY:3 PUMPS;?
     Route: 061

REACTIONS (2)
  - Product use complaint [None]
  - Product label issue [None]

NARRATIVE: CASE EVENT DATE: 20200319
